FAERS Safety Report 8165564-3 (Version None)
Quarter: 2012Q1

REPORT INFORMATION
  Report Type: 
  Country: None (occurrence: None)
  Receive Date: 20120103
  Receipt Date: 20111011
  Transmission Date: 20120608
  Serious: No
  Sender: FDA-Public Use
  Company Number: AE-2011-002251

PATIENT
  Sex: Female

DRUGS (3)
  1. INCIVEK [Suspect]
     Dates: start: 20110901
  2. PEGINTERFERON (PEGINTERFERON ALFA-2A) [Concomitant]
  3. RIBAVIRIN [Concomitant]

REACTIONS (3)
  - CHEST DISCOMFORT [None]
  - ABDOMINAL DISTENSION [None]
  - DYSPHAGIA [None]
